FAERS Safety Report 7281807-2 (Version None)
Quarter: 2011Q1

REPORT INFORMATION
  Report Type: 
  Country: None (occurrence: None)
  Receive Date: 20110208
  Receipt Date: 20110207
  Transmission Date: 20110831
  Serious: Yes (Death, Other)
  Sender: FDA-Public Use
  Company Number: US-AMGEN-QUU402068

PATIENT
  Sex: Female

DRUGS (3)
  1. RITUXIMAB [Concomitant]
     Dosage: UNK UNK, UNK
     Dates: start: 20090325
  2. NPLATE [Suspect]
     Indication: IDIOPATHIC THROMBOCYTOPENIC PURPURA
     Dosage: 300 A?G, UNK
     Dates: start: 20091020, end: 20100929
  3. NPLATE [Suspect]
     Dates: start: 20091020, end: 20100316

REACTIONS (3)
  - THERAPEUTIC RESPONSE DECREASED [None]
  - DRUG INEFFECTIVE [None]
  - DEATH [None]
